FAERS Safety Report 4376128-1 (Version None)
Quarter: 2004Q2

REPORT INFORMATION
  Report Type: 
  Country: None (occurrence: None)
  Receive Date: 20040611
  Receipt Date: 20040426
  Transmission Date: 20050107
  Serious: Yes (Other)
  Sender: FDA-Public Use
  Company Number: JP-ROCHE-365284

PATIENT
  Age: 75 Year
  Sex: Female

DRUGS (7)
  1. TORSEMIDE [Suspect]
     Indication: CARDIAC FAILURE
     Route: 048
     Dates: start: 20040304
  2. DIOVAN [Suspect]
     Indication: DRUG USE FOR UNKNOWN INDICATION
     Route: 048
     Dates: start: 20011127
  3. GLUCOBAY [Concomitant]
     Dates: start: 20011127
  4. AMARYL [Concomitant]
     Dates: start: 20020108
  5. AMLODIPINE [Concomitant]
     Dates: start: 20020122
  6. LIPITOR [Concomitant]
     Dates: start: 20030625
  7. CARDENALIN [Concomitant]
     Dates: start: 20031113

REACTIONS (4)
  - BLOOD GLUCOSE DECREASED [None]
  - COLD SWEAT [None]
  - DEPRESSED LEVEL OF CONSCIOUSNESS [None]
  - HYPERKALAEMIA [None]
